FAERS Safety Report 9303987 (Version 1)
Quarter: 2013Q2

REPORT INFORMATION
  Report Type: Spontaneous
  Country: DE (occurrence: DE)
  Receive Date: 20130522
  Receipt Date: 20130522
  Transmission Date: 20140414
  Serious: Yes (Hospitalization, Other)
  Sender: FDA-Public Use
  Company Number: GXKR2013DE001855

PATIENT
  Sex: Male

DRUGS (4)
  1. RAMIPRIL 1A PHARMA [Suspect]
     Indication: HYPERTENSION
     Route: 048
  2. CANDESARTAN CILEXETIL [Suspect]
     Indication: HYPERTENSION
     Dosage: 8 MG, UNK
     Route: 048
     Dates: start: 20130127, end: 20130201
  3. CANDESARTAN CILEXETIL [Suspect]
     Dosage: UNK
     Dates: start: 20130312, end: 20130417
  4. AMLODIPINE MALEATE [Suspect]
     Indication: HYPERTENSION
     Dosage: UNK MG, BID
     Route: 048
     Dates: start: 20130312, end: 20130417

REACTIONS (8)
  - Amyotrophic lateral sclerosis [Not Recovered/Not Resolved]
  - Muscle twitching [Unknown]
  - Choking sensation [Unknown]
  - Swollen tongue [Unknown]
  - Pharyngeal oedema [Unknown]
  - Dysphagia [Unknown]
  - Speech disorder [Unknown]
  - Chills [Unknown]
